FAERS Safety Report 6268766-6 (Version None)
Quarter: 2009Q3

REPORT INFORMATION
  Report Type: 
  Country: None (occurrence: None)
  Receive Date: 20090713
  Receipt Date: 20090713
  Transmission Date: 20100115
  Serious: Yes (Hospitalization)
  Sender: FDA-Public Use
  Company Number: None

PATIENT
  Age: 65 Year
  Sex: Male
  Weight: 54.1 kg

DRUGS (2)
  1. GLIPIZIDE [Suspect]
     Indication: DIABETES MELLITUS
     Dosage: 15 MG EVERY DAY PO
     Route: 048
     Dates: start: 20041004, end: 20090709
  2. PIOGLITAZONE [Suspect]
     Indication: DIABETES MELLITUS
     Dosage: 15 MG EVERY DAY PO
     Route: 048
     Dates: start: 20081022, end: 20090709

REACTIONS (1)
  - HYPOGLYCAEMIA [None]
